FAERS Safety Report 25739621 (Version 1)
Quarter: 2025Q3

REPORT INFORMATION
  Report Type: Other
  Country: GB (occurrence: GB)
  Receive Date: 20250829
  Receipt Date: 20250829
  Transmission Date: 20251021
  Serious: Yes (Other)
  Sender: MACLEODS
  Company Number: GB-MHRA-TPP45884071C6118765YC1755527638066

PATIENT

DRUGS (8)
  1. TOLTERODINE [Suspect]
     Active Substance: TOLTERODINE
     Indication: Ill-defined disorder
     Route: 065
  2. HYDROXOCOBALAMIN [Concomitant]
     Active Substance: HYDROXOCOBALAMIN
     Indication: Ill-defined disorder
     Route: 030
     Dates: start: 20250630, end: 20250703
  3. ESTRIOL [Concomitant]
     Active Substance: ESTRIOL
     Indication: Ill-defined disorder
     Dosage: APPLY AT NIGHT
     Route: 065
     Dates: start: 20250707
  4. ATORVASTATIN [Concomitant]
     Active Substance: ATORVASTATIN
     Dosage: TAKE ONE TABLET ONCE A DAY, TO REDUCE CHOLESTEROL
     Route: 065
     Dates: start: 20211117
  5. CITALOPRAM [Concomitant]
     Active Substance: CITALOPRAM
     Indication: Depression
     Dosage: TAKE TWO EVERY DAY FOR DEPRESSION
     Route: 065
     Dates: start: 20220125
  6. PROPRANOLOL [Concomitant]
     Active Substance: PROPRANOLOL HYDROCHLORIDE
     Indication: Ill-defined disorder
     Route: 065
     Dates: start: 20240927
  7. AMLODIPINE [Concomitant]
     Active Substance: AMLODIPINE BESYLATE
     Indication: Blood pressure abnormal
     Dosage: TAKE ONE DAILY FOR BP
     Route: 065
     Dates: start: 20241128, end: 20250630
  8. TIMOLOL [Concomitant]
     Active Substance: TIMOLOL
     Indication: Ill-defined disorder
     Dosage: ONE DROP ONCE DAILY TO BOTH EYES FOR OCULAR PRE...
     Route: 065
     Dates: start: 20250325

REACTIONS (2)
  - Dry throat [Recovering/Resolving]
  - Dysphagia [Recovering/Resolving]
